FAERS Safety Report 9442569 (Version 3)
Quarter: 2013Q4

REPORT INFORMATION
  Report Type: Not Available
  Country: FR (occurrence: FR)
  Receive Date: 20130806
  Receipt Date: 20131015
  Transmission Date: 20140711
  Serious: Yes (Hospitalization)
  Sender: FDA-Public Use
  Company Number: FR-ASTELLAS-2013EU006645

PATIENT
  Age: 36 Year
  Sex: Male

DRUGS (10)
  1. PROGRAF [Suspect]
     Dosage: 3.5 MG, BID
     Route: 065
  2. SOLIRIS [Suspect]
     Dosage: 900 MG, UNKNOWN/D
     Route: 042
     Dates: start: 20130612, end: 20130703
  3. SOLIRIS [Suspect]
     Dosage: 1200 MG, UNKNOWN/D
     Route: 042
     Dates: start: 20130710
  4. SOLIRIS [Suspect]
     Dosage: UNK
     Route: 042
     Dates: start: 20130720
  5. ORACILLINE /00001801/ [Suspect]
     Dosage: UNK
     Route: 048
     Dates: start: 20130612
  6. CELLCEPT /01275102/ [Suspect]
     Dosage: 500 MG, BID
     Route: 065
  7. EUPRESSYL                          /00631801/ [Concomitant]
     Dosage: 2 DF, UNKNOWN/D
     Route: 048
  8. AMLOR [Concomitant]
     Dosage: 1 DF, UNKNOWN/D
     Route: 048
  9. TENORMINE [Concomitant]
     Dosage: 1 DF, UNKNOWN/D
     Route: 048
  10. TAHOR [Concomitant]
     Dosage: 1 DF, UNKNOWN/D
     Route: 048

REACTIONS (1)
  - Renal haematoma [Recovered/Resolved with Sequelae]
